FAERS Safety Report 17253563 (Version 4)
Quarter: 2020Q2

REPORT INFORMATION
  Report Type: Report from Study
  Country: US (occurrence: US)
  Receive Date: 20200109
  Receipt Date: 20200513
  Transmission Date: 20200713
  Serious: Yes (Hospitalization, Disabling, Other)
  Sender: FDA-Public Use
  Company Number: US-ACTELION-A-US2016-130132

PATIENT
  Sex: Male
  Weight: 123.36 kg

DRUGS (6)
  1. TRACLEER [Suspect]
     Active Substance: BOSENTAN
     Indication: PULMONARY ARTERIAL HYPERTENSION
     Dosage: 125 MG, BID
     Route: 048
     Dates: start: 2009
  2. LASIX [Concomitant]
     Active Substance: FUROSEMIDE
     Dosage: 80 MG, QD
  3. SILDENAFIL. [Concomitant]
     Active Substance: SILDENAFIL
  4. LASIX [Concomitant]
     Active Substance: FUROSEMIDE
     Dosage: 80 MG, BID
  5. TRACLEER [Suspect]
     Active Substance: BOSENTAN
     Dosage: 125 MG, BID
     Route: 048
     Dates: start: 20130627
  6. PRADAXA [Suspect]
     Active Substance: DABIGATRAN ETEXILATE MESYLATE
     Indication: PRODUCT USED FOR UNKNOWN INDICATION
     Route: 065

REACTIONS (25)
  - Upper-airway cough syndrome [Unknown]
  - Weight increased [Unknown]
  - Migraine [Unknown]
  - Atrial fibrillation [Recovered/Resolved]
  - Syncope [Unknown]
  - Stress [Unknown]
  - Cardiac disorder [Recovered/Resolved]
  - Dyspnoea [Unknown]
  - Decreased activity [Unknown]
  - Oedema peripheral [Unknown]
  - Influenza [Unknown]
  - Hospitalisation [Unknown]
  - Internal haemorrhage [Recovered/Resolved]
  - Type 2 diabetes mellitus [Unknown]
  - Hypersensitivity [Unknown]
  - Dyspnoea exertional [Unknown]
  - Hypertension [Unknown]
  - Presyncope [Unknown]
  - Disability [Unknown]
  - Pulmonary hypertension [Unknown]
  - Dizziness [Unknown]
  - Exercise tolerance decreased [Unknown]
  - Oxygen saturation decreased [Unknown]
  - Malaise [Unknown]
  - Oedema [Unknown]
